FAERS Safety Report 14036291 (Version 1)
Quarter: 2017Q4

REPORT INFORMATION
  Report Type: Spontaneous
  Country: US (occurrence: US)
  Receive Date: 20171003
  Receipt Date: 20171003
  Transmission Date: 20180321
  Serious: No
  Sender: FDA-Public Use
  Company Number: US-ROCHE-1971944

PATIENT
  Age: 65 Year
  Sex: Male

DRUGS (9)
  1. ALLOPURINOL. [Concomitant]
     Active Substance: ALLOPURINOL
     Route: 065
  2. GARLIC. [Concomitant]
     Active Substance: GARLIC
  3. COENZYME Q10 [Concomitant]
     Active Substance: UBIDECARENONE
  4. BENADRYL [Concomitant]
     Active Substance: DIPHENHYDRAMINE HYDROCHLORIDE
  5. LISINOPRIL. [Concomitant]
     Active Substance: LISINOPRIL
  6. DOXAZOSIN [Concomitant]
     Active Substance: DOXAZOSIN\DOXAZOSIN MESYLATE
  7. COTELLIC [Suspect]
     Active Substance: COBIMETINIB
     Indication: MALIGNANT MELANOMA
     Dosage: TAKE 3 TABLETS BY MOUTH EVERY DAY FOR 21 DAYS THEN 7 DAYS OFF AND REPEAT
     Route: 048
  8. NIFEDIPINE. [Concomitant]
     Active Substance: NIFEDIPINE
  9. VITAMIN C [Concomitant]
     Active Substance: ASCORBIC ACID

REACTIONS (1)
  - Swelling face [Unknown]
